FAERS Safety Report 8570660 (Version 4)
Quarter: 2012Q4

REPORT INFORMATION
  Report Type: 
  Country: JP (occurrence: JP)
  Receive Date: 20120521
  Receipt Date: 20121227
  Transmission Date: 20130627
  Serious: Yes (Other)
  Sender: FDA-Public Use
  Company Number: JP-SANOFI-AVENTIS-2012SA035492

PATIENT
  Age: 67 Year
  Sex: Female
  Weight: 45.6 kg

DRUGS (4)
  1. MYSLEE [Suspect]
     Indication: INSOMNIA
     Route: 048
     Dates: end: 20120423
  2. MYSLEE [Suspect]
     Indication: INSOMNIA
     Route: 048
     Dates: start: 20120424, end: 20120424
  3. DAIKENTYUTO [Concomitant]
     Indication: PROPHYLAXIS
     Route: 048
  4. SENNA [Concomitant]
     Indication: CONSTIPATION
     Route: 048

REACTIONS (2)
  - Altered state of consciousness [Recovering/Resolving]
  - Intentional drug misuse [Unknown]
